FAERS Safety Report 8990006 (Version 2)
Quarter: 2013Q1

REPORT INFORMATION
  Report Type: Spontaneous
  Country: CA (occurrence: CA)
  Receive Date: 20121228
  Receipt Date: 20130222
  Transmission Date: 20140127
  Serious: Yes (Hospitalization)
  Sender: FDA-Public Use
  Company Number: CA-BAXTER-2012BAX028748

PATIENT
  Sex: Male

DRUGS (2)
  1. DIANEAL PD4 SOLUTION WITH 1.5% DEXTROSE AND 2.5 MEQ/L CALCIUM [Suspect]
     Indication: RENAL IMPAIRMENT
     Route: 033
  2. EXTRANEAL [Suspect]
     Indication: RENAL IMPAIRMENT
     Route: 033

REACTIONS (1)
  - Cerebrovascular accident [Recovered/Resolved with Sequelae]
